FAERS Safety Report 20104931 (Version 2)
Quarter: 2021Q4

REPORT INFORMATION
  Report Type: Spontaneous
  Country: CA (occurrence: CA)
  Receive Date: 20211124
  Receipt Date: 20211129
  Transmission Date: 20220303
  Serious: Yes (Other)
  Sender: FDA-Public Use
  Company Number: CA-SA-SAC20211119000345

PATIENT
  Age: 63 Year
  Sex: Female

DRUGS (8)
  1. HYDROXYCHLOROQUINE SULFATE [Suspect]
     Active Substance: HYDROXYCHLOROQUINE SULFATE
     Indication: Product used for unknown indication
  2. ARAVA [Suspect]
     Active Substance: LEFLUNOMIDE
     Indication: Product used for unknown indication
     Route: 048
  3. ARAVA [Suspect]
     Active Substance: LEFLUNOMIDE
     Dosage: 1 DF, QD
     Route: 048
  4. ARAVA [Suspect]
     Active Substance: LEFLUNOMIDE
     Dosage: 10 MG
     Route: 048
  5. METHOTREXATE [Suspect]
     Active Substance: METHOTREXATE
     Indication: Product used for unknown indication
  6. PREDNISONE [Suspect]
     Active Substance: PREDNISONE
     Indication: Product used for unknown indication
     Dosage: UNK
  7. SULFASALAZINE [Suspect]
     Active Substance: SULFASALAZINE
     Indication: Product used for unknown indication
  8. PROLIA [Concomitant]
     Active Substance: DENOSUMAB

REACTIONS (9)
  - Blood creatine increased [Unknown]
  - Drug intolerance [Unknown]
  - Electrocardiogram QT prolonged [Unknown]
  - General physical health deterioration [Unknown]
  - Hypersensitivity [Unknown]
  - Oral infection [Unknown]
  - Pain [Unknown]
  - C-reactive protein abnormal [Unknown]
  - Drug ineffective [Unknown]
